FAERS Safety Report 4320758-X (Version None)
Quarter: 2004Q1

REPORT INFORMATION
  Report Type: 
  Country: None (occurrence: None)
  Receive Date: 20040315
  Receipt Date: 20040130
  Transmission Date: 20041129
  Serious: No
  Sender: FDA-Public Use
  Company Number: 2003184878US

PATIENT
  Age: 78 Year
  Sex: Female
  Weight: 66.7 kg

DRUGS (6)
  1. BEXTRA [Suspect]
     Indication: OSTEOARTHRITIS
     Dosage: 20 MG, QD, ORAL
     Route: 048
     Dates: start: 20020601, end: 20031201
  2. SYNTHROID [Concomitant]
  3. NORVASC [Concomitant]
  4. PRILOSEC [Concomitant]
  5. MACUVITES [Concomitant]
  6. FOSAMAX [Concomitant]

REACTIONS (5)
  - ANOREXIA [None]
  - GASTRIC ULCER [None]
  - HAEMOGLOBIN DECREASED [None]
  - HAEMORRHAGE [None]
  - SYNCOPE [None]
